FAERS Safety Report 4961675-1 (Version None)
Quarter: 2006Q2

REPORT INFORMATION
  Report Type: 
  Country: None (occurrence: None)
  Receive Date: 20060404
  Receipt Date: 20040928
  Transmission Date: 20061013
  Serious: Yes (Hospitalization, Other)
  Sender: FDA-Public Use
  Company Number: PHBS2004JP13008

PATIENT
  Age: 54 Year
  Sex: Male

DRUGS (1)
  1. LAMISIL [Suspect]
     Indication: NAIL TINEA
     Dosage: 125 MG/D
     Route: 048
     Dates: start: 20040801, end: 20040801

REACTIONS (3)
  - DRUG ERUPTION [None]
  - DYSPNOEA [None]
  - LIVER DISORDER [None]
